FAERS Safety Report 9241041 (Version 2)
Quarter: 2013Q4

REPORT INFORMATION
  Report Type: Spontaneous
  Country: US (occurrence: US)
  Receive Date: 20130419
  Receipt Date: 20131224
  Transmission Date: 20140711
  Serious: Yes (Hospitalization)
  Sender: FDA-Public Use
  Company Number: US-BIOGENIDEC-2013BI033709

PATIENT
  Age: 57 Year
  Sex: Female

DRUGS (2)
  1. AVONEX [Suspect]
     Indication: MULTIPLE SCLEROSIS
     Route: 030
     Dates: start: 19961001, end: 2003
  2. AVONEX [Suspect]
     Indication: MULTIPLE SCLEROSIS
     Route: 030
     Dates: start: 2003

REACTIONS (14)
  - Congenital cyst [Recovered/Resolved]
  - Surgery [Recovered/Resolved]
  - Balance disorder [Recovered/Resolved]
  - Mobility decreased [Recovered/Resolved]
  - Ophthalmoplegia [Unknown]
  - Nasopharyngitis [Recovered/Resolved]
  - Bronchitis [Not Recovered/Not Resolved]
  - Cough [Not Recovered/Not Resolved]
  - Wrong technique in drug usage process [Recovered/Resolved]
  - Incontinence [Unknown]
  - Menopausal symptoms [Recovered/Resolved]
  - Osteopenia [Not Recovered/Not Resolved]
  - Multiple sclerosis [Recovered/Resolved]
  - Pyrexia [Recovered/Resolved]
